FAERS Safety Report 9605666 (Version 1)
Quarter: 2013Q4

REPORT INFORMATION
  Report Type: Spontaneous
  Country: FR (occurrence: FR)
  Receive Date: 20131008
  Receipt Date: 20131008
  Transmission Date: 20140711
  Serious: Yes (Hospitalization, Other)
  Sender: FDA-Public Use
  Company Number: FR-PFIZER INC-2013285573

PATIENT
  Age: 52 Year
  Sex: Female

DRUGS (1)
  1. VENLAFAXINE HCL [Suspect]
     Dosage: 75 MG, 1X/DAY
     Dates: end: 200807

REACTIONS (5)
  - Cerebrospinal fistula [Unknown]
  - Cerebrospinal fluid leakage [Unknown]
  - Cerebral venous thrombosis [Unknown]
  - Blindness [Unknown]
  - Weight increased [Unknown]
